FAERS Safety Report 5271793-9 (Version None)
Quarter: 2007Q1

REPORT INFORMATION
  Report Type: 
  Country: None (occurrence: None)
  Receive Date: 20070321
  Receipt Date: 20070312
  Transmission Date: 20070707
  Serious: Yes (Life-Threatening)
  Sender: FDA-Public Use
  Company Number: FR-PFIZER INC-2007019022

PATIENT
  Age: 76 Year
  Sex: Female

DRUGS (6)
  1. AMLODIPINE [Suspect]
     Route: 048
  2. TAHOR [Suspect]
     Dosage: DAILY DOSE:20MG-FREQ:DAILY
     Route: 048
  3. GLUCOPHAGE [Suspect]
     Dosage: DAILY DOSE:2000MG-FREQ:DAILY
     Route: 048
     Dates: start: 20040615, end: 20070106
  4. COAPROVEL [Suspect]
     Dosage: DAILY DOSE:300MG-FREQ:DAILY
     Route: 048
  5. PLAVIX [Suspect]
     Route: 048
  6. INSULIN GLARGINE [Concomitant]
     Dosage: TEXT:16 TU-FREQ:DAILY
     Route: 058

REACTIONS (3)
  - COMA [None]
  - LACTIC ACIDOSIS [None]
  - LUNG DISORDER [None]
